FAERS Safety Report 21823184 (Version 1)
Quarter: 2023Q1

REPORT INFORMATION
  Report Type: Spontaneous
  Country: FR (occurrence: FR)
  Receive Date: 20230105
  Receipt Date: 20230105
  Transmission Date: 20230418
  Serious: Yes (Hospitalization, Other)
  Sender: FDA-Public Use
  Company Number: FR-CELLTRION INC.-2022FR022060

PATIENT

DRUGS (18)
  1. RITUXIMAB [Suspect]
     Active Substance: RITUXIMAB
     Indication: Graft versus host disease in skin
     Dosage: 4-WEEK COURSE THEN MONTHLY UP TO APRIL 2019
     Route: 042
     Dates: start: 201806, end: 201904
  2. TACROLIMUS [Suspect]
     Active Substance: TACROLIMUS
     Indication: Prophylaxis against graft versus host disease
  3. MYCOPHENOLATE MOFETIL [Suspect]
     Active Substance: MYCOPHENOLATE MOFETIL
     Indication: Prophylaxis against graft versus host disease
     Dosage: 1 GRAM, 0.5 DAY
  4. MYCOPHENOLATE MOFETIL [Suspect]
     Active Substance: MYCOPHENOLATE MOFETIL
     Indication: Prophylaxis against transplant rejection
     Dosage: UNK
     Dates: start: 201309
  5. PREDNISOLONE [Suspect]
     Active Substance: PREDNISOLONE
     Indication: Prophylaxis against graft versus host disease
     Dosage: 1 MG/KG/DAY, 70 MG/DAY
  6. PREDNISOLONE [Suspect]
     Active Substance: PREDNISOLONE
     Dosage: UNK
     Dates: start: 201303
  7. CYCLOSPORINE [Suspect]
     Active Substance: CYCLOSPORINE
     Indication: Prophylaxis against graft versus host disease
     Dosage: UNK
     Route: 061
  8. CYCLOSPORINE [Suspect]
     Active Substance: CYCLOSPORINE
     Dosage: STARTED ON DAY 1, THEN GRADUALLY DECREASED
     Dates: start: 2011
  9. RUXOLITINIB [Concomitant]
     Active Substance: RUXOLITINIB
  10. METHOTREXATE [Concomitant]
     Active Substance: METHOTREXATE
     Indication: Prophylaxis against graft versus host disease
     Dosage: 10 MG/M2, ON DAY+3 AND DAY+6
  11. METHOTREXATE [Concomitant]
     Active Substance: METHOTREXATE
     Dosage: 15 MG/M2, ON DAY+1
     Dates: start: 2011
  12. CYTARABINE [Concomitant]
     Active Substance: CYTARABINE
     Indication: Acute myeloid leukaemia
  13. GEMTUZUMAB OZOGAMICIN [Concomitant]
     Active Substance: GEMTUZUMAB OZOGAMICIN
  14. IMATINIB [Concomitant]
     Active Substance: IMATINIB
     Dosage: UNK
     Dates: start: 201304
  15. IMATINIB [Concomitant]
     Active Substance: IMATINIB
     Dosage: UNK
     Dates: start: 201309
  16. DAUNORUBICIN [Concomitant]
     Active Substance: DAUNORUBICIN
     Indication: Acute myeloid leukaemia
  17. SPIRIVA [Concomitant]
     Active Substance: TIOTROPIUM BROMIDE MONOHYDRATE
  18. SYMBICORT [Concomitant]
     Active Substance: BUDESONIDE\FORMOTEROL FUMARATE DIHYDRATE

REACTIONS (6)
  - Pneumonia pneumococcal [Recovered/Resolved]
  - Pneumonia cytomegaloviral [Recovered/Resolved]
  - Pneumonia [Recovered/Resolved]
  - Bronchopulmonary aspergillosis [Recovered/Resolved]
  - Influenza [Recovered/Resolved]
  - Off label use [Unknown]

NARRATIVE: CASE EVENT DATE: 20151201
